FAERS Safety Report 6161400-5 (Version None)
Quarter: 2009Q2

REPORT INFORMATION
  Report Type: 
  Country: None (occurrence: None)
  Receive Date: 20090417
  Receipt Date: 20090417
  Transmission Date: 20091009
  Serious: Yes (Life-Threatening)
  Sender: FDA-Public Use
  Company Number: None

PATIENT
  Age: 64 Year
  Sex: Female
  Weight: 105.9 kg

DRUGS (18)
  1. AZITHROMYCIN [Suspect]
     Dosage: 500MG IV Q24HR
     Route: 042
     Dates: start: 20090319, end: 20090323
  2. SOTALOL HYDROCHLORIDE [Suspect]
     Dosage: 80MG Q 12HR  (PRIOR TO ADMISSION)
  3. FUROSEMIDE [Concomitant]
  4. INSULIN GLARGINE [Concomitant]
  5. COMBIVENT [Concomitant]
  6. SYMBICORT [Concomitant]
  7. VARENICLINE [Concomitant]
  8. WARFARIN SODIUM [Concomitant]
  9. SITAGLIPTIN [Concomitant]
  10. CELECOXIB [Concomitant]
  11. VALSARTAN [Concomitant]
  12. FENOFIBRATE [Concomitant]
  13. EZETIMIBE [Concomitant]
  14. FLUOXETINE [Concomitant]
  15. CLONAZEPAM [Concomitant]
  16. SPIRONOLACTONE [Concomitant]
  17. SIMVASTATIN [Concomitant]
  18. GABAPENTIN [Concomitant]

REACTIONS (6)
  - CARDIO-RESPIRATORY ARREST [None]
  - DEVICE ELECTRICAL FINDING [None]
  - ELECTROCARDIOGRAM QT PROLONGED [None]
  - PNEUMONIA [None]
  - PULMONARY OEDEMA [None]
  - VENTRICULAR TACHYCARDIA [None]
